FAERS Safety Report 19067259 (Version 1)
Quarter: 2021Q1

REPORT INFORMATION
  Report Type: Spontaneous
  Country: DE (occurrence: DE)
  Receive Date: 20210329
  Receipt Date: 20210329
  Transmission Date: 20210420
  Serious: Yes (Death)
  Sender: FDA-Public Use
  Company Number: DE-ABBVIE-21K-062-3834812-00

PATIENT
  Age: 80 Year
  Sex: Male
  Weight: 69 kg

DRUGS (40)
  1. VILANTEROL TRIFENATATE [Suspect]
     Active Substance: VILANTEROL TRIFENATATE
     Indication: PRODUCT USED FOR UNKNOWN INDICATION
     Route: 065
  2. INSULIN DEGLUDEC [Suspect]
     Active Substance: INSULIN DEGLUDEC
     Indication: DIABETES MELLITUS
     Route: 065
  3. UMECLIDINIUM BROMIDE [Suspect]
     Active Substance: UMECLIDINIUM BROMIDE
     Indication: DYSPNOEA
     Route: 065
  4. WARFARIN [Suspect]
     Active Substance: WARFARIN
     Indication: THROMBOSIS
     Route: 065
  5. PHYTOMENADIONE [Suspect]
     Active Substance: PHYTONADIONE
     Indication: VITAMIN SUPPLEMENTATION
     Route: 065
  6. DALTEPARIN SODIUM [Suspect]
     Active Substance: DALTEPARIN SODIUM
     Indication: PULMONARY EMBOLISM
     Route: 065
  7. PYRIDOXINE HYDROCHLORIDE. [Suspect]
     Active Substance: PYRIDOXINE HYDROCHLORIDE
     Indication: VITAMIN SUPPLEMENTATION
     Route: 065
  8. GLUCOSE [Suspect]
     Active Substance: DEXTROSE
     Indication: NUTRITIONAL SUPPLEMENTATION
     Route: 065
  9. SODIUM PHOSPHATE MONOBASIC [Suspect]
     Active Substance: SODIUM PHOSPHATE, MONOBASIC
     Indication: CONSTIPATION
     Route: 065
  10. HYDROMORPHONE [Suspect]
     Active Substance: HYDROMORPHONE
     Indication: ANALGESIC THERAPY
     Route: 065
  11. POTASSIUM CHLORIDE. [Concomitant]
     Active Substance: POTASSIUM CHLORIDE
     Indication: PRODUCT USED FOR UNKNOWN INDICATION
  12. CALCITRIOL. [Suspect]
     Active Substance: CALCITRIOL
     Indication: VITAMIN D
     Route: 065
  13. SODIUM FERRIC GLUCONATE COMPLEX. [Suspect]
     Active Substance: SODIUM FERRIC GLUCONATE COMPLEX
     Indication: IRON DEFICIENCY
     Route: 065
  14. ONDANSETRON [Suspect]
     Active Substance: ONDANSETRON
     Indication: NAUSEA
  15. SODIUM CITRATE. [Suspect]
     Active Substance: SODIUM CITRATE
     Indication: THROMBOSIS
     Route: 065
  16. ALLOPURINOL. [Suspect]
     Active Substance: ALLOPURINOL
     Indication: BLOOD URIC ACID INCREASED
     Route: 065
  17. LANSOPRAZOLE. [Suspect]
     Active Substance: LANSOPRAZOLE
     Indication: ANTACID THERAPY
     Route: 065
  18. SIMVASTATIN. [Suspect]
     Active Substance: SIMVASTATIN
     Indication: BLOOD CHOLESTEROL INCREASED
     Route: 065
  19. DULCOLAX NOS [Suspect]
     Active Substance: BISACODYL OR DOCUSATE SODIUM
     Indication: CONSTIPATION
     Route: 065
  20. GABAPENTIN. [Suspect]
     Active Substance: GABAPENTIN
     Indication: NEURALGIA
     Route: 065
  21. VASOPRESSIN. [Suspect]
     Active Substance: VASOPRESSIN
     Indication: DRUG THERAPY
     Route: 065
  22. PARACETAMOL [Suspect]
     Active Substance: ACETAMINOPHEN
     Indication: ANALGESIC THERAPY
     Route: 065
  23. NOREPINEPHRINE. [Suspect]
     Active Substance: NOREPINEPHRINE
     Indication: STRESS
     Route: 065
  24. CEFTRIAXONE. [Suspect]
     Active Substance: CEFTRIAXONE
     Indication: BACTERIAL INFECTION
     Route: 065
  25. ATROVENT [Suspect]
     Active Substance: IPRATROPIUM BROMIDE
     Indication: DYSPNOEA
     Route: 065
  26. ARANESP [Suspect]
     Active Substance: DARBEPOETIN ALFA
     Indication: ANAEMIA
     Route: 065
  27. HEPARIN SODIUM. [Suspect]
     Active Substance: HEPARIN SODIUM
     Indication: ANTICOAGULANT THERAPY
     Route: 065
  28. SALBUTAMOL [Suspect]
     Active Substance: ALBUTEROL
     Indication: CHRONIC OBSTRUCTIVE PULMONARY DISEASE
     Route: 065
  29. MACROGOL 3350 [Suspect]
     Active Substance: POLYETHYLENE GLYCOL 3350
     Indication: CONSTIPATION
     Route: 065
  30. INSULIN ASPART [Suspect]
     Active Substance: INSULIN ASPART
     Indication: DIABETES MELLITUS
     Route: 065
  31. LANTHANUM CARBONATE. [Suspect]
     Active Substance: LANTHANUM CARBONATE
     Indication: BLOOD PHOSPHORUS INCREASED
     Route: 065
  32. ONDANSETRON [Suspect]
     Active Substance: ONDANSETRON
     Indication: VOMITING
     Route: 065
  33. MELATONIN [Suspect]
     Active Substance: MELATONIN
     Indication: SLEEP DISORDER THERAPY
     Route: 065
  34. DOBUTAMINE [Suspect]
     Active Substance: DOBUTAMINE HYDROCHLORIDE
     Indication: CARDIOGENIC SHOCK
     Route: 065
  35. METRONIDAZOLE. [Suspect]
     Active Substance: METRONIDAZOLE
     Indication: BACTERIAL INFECTION
     Route: 065
  36. AMIODARONE [Suspect]
     Active Substance: AMIODARONE
     Indication: VENTRICULAR FIBRILLATION
     Route: 065
  37. BETACAROTENE [Concomitant]
     Active Substance: .BETA.-CAROTENE
     Indication: PRODUCT USED FOR UNKNOWN INDICATION
  38. FLUTICASONE FUROATE;VILANTEROL TRIFENATATE [Suspect]
     Active Substance: FLUTICASONE FUROATE\VILANTEROL TRIFENATATE
     Indication: PRODUCT USED FOR UNKNOWN INDICATION
     Route: 065
  39. BETAMETHASONE. [Suspect]
     Active Substance: BETAMETHASONE
     Indication: SWELLING
     Route: 065
  40. ASCORBIC ACID. [Concomitant]
     Active Substance: ASCORBIC ACID
     Indication: PRODUCT USED FOR UNKNOWN INDICATION

REACTIONS (14)
  - Nausea [Fatal]
  - Stress [Fatal]
  - Abdominal distension [Fatal]
  - Multiple organ dysfunction syndrome [Fatal]
  - Abdominal pain [Fatal]
  - Vomiting [Fatal]
  - Appendicitis [Fatal]
  - Cardiogenic shock [Fatal]
  - Hyponatraemia [Fatal]
  - Ascites [Fatal]
  - General physical health deterioration [Fatal]
  - Sepsis [Fatal]
  - Constipation [Fatal]
  - Appendicolith [Fatal]
